FAERS Safety Report 9543038 (Version 1)
Quarter: 2013Q3

REPORT INFORMATION
  Report Type: Spontaneous
  Country: CA (occurrence: CA)
  Receive Date: 20130923
  Receipt Date: 20130923
  Transmission Date: 20140515
  Serious: Yes (Other)
  Sender: FDA-Public Use
  Company Number: PHHY2013CA102102

PATIENT
  Age: 59 Year
  Sex: Female

DRUGS (2)
  1. ALENDRONIC ACID [Suspect]
     Indication: OSTEOPOROSIS
     Dates: start: 2007, end: 201203
  2. CALCIUM [Concomitant]
     Dosage: 1200 MG, UNK

REACTIONS (2)
  - Bone disorder [Recovered/Resolved]
  - Pain in extremity [Recovered/Resolved]
